FAERS Safety Report 9261665 (Version 1)
Quarter: 2013Q2

REPORT INFORMATION
  Report Type: Spontaneous
  Country: FR (occurrence: FR)
  Receive Date: 20130429
  Receipt Date: 20130429
  Transmission Date: 20140414
  Serious: Yes (Hospitalization)
  Sender: FDA-Public Use
  Company Number: FR-PFIZER INC-2013126263

PATIENT
  Age: 56 Year
  Sex: Male

DRUGS (1)
  1. ZYVOXID [Suspect]
     Indication: SUPERINFECTION
     Dosage: 600 MG, 2X/DAY
     Route: 042
     Dates: start: 20130203, end: 20130218

REACTIONS (1)
  - Thrombophlebitis superficial [Recovered/Resolved]
